FAERS Safety Report 6135560-6 (Version None)
Quarter: 2009Q1

REPORT INFORMATION
  Report Type: 
  Country: None (occurrence: None)
  Receive Date: 20090327
  Receipt Date: 20090318
  Transmission Date: 20090719
  Serious: Yes (Disabling, Other)
  Sender: FDA-Public Use
  Company Number: PHHY2008GB33105

PATIENT
  Sex: Female

DRUGS (7)
  1. CLOZARIL [Suspect]
     Indication: SCHIZOPHRENIA
     Dosage: 350 MG/DAY
     Dates: start: 20071201
  2. VALPROATE SODIUM [Concomitant]
     Indication: AFFECTIVE DISORDER
     Dosage: 600 MG DAILY
     Route: 048
  3. VENLAFAXINE [Concomitant]
     Indication: DEPRESSION
     Dosage: 50 MG DAILY
     Route: 048
  4. PROCYCLIDINE HYDROCHLORIDE 2MG TAB [Concomitant]
     Indication: EXTRAPYRAMIDAL DISORDER
     Dosage: 10 MG DAILY
     Route: 048
  5. FRUSEMIDE [Concomitant]
     Dosage: 40
     Route: 048
  6. MELOXICAM [Concomitant]
     Route: 048
  7. DIAZEPAM [Concomitant]
     Dosage: 2MG DAILY
     Route: 048

REACTIONS (8)
  - CONSTIPATION [None]
  - DYSPNOEA [None]
  - HIP ARTHROPLASTY [None]
  - LUNG DISORDER [None]
  - OSTEOARTHRITIS [None]
  - PULMONARY FIBROSIS [None]
  - SINUS TACHYCARDIA [None]
  - WEIGHT DECREASED [None]
